FAERS Safety Report 8443597-7 (Version None)
Quarter: 2012Q2

REPORT INFORMATION
  Report Type: 
  Country: None (occurrence: None)
  Receive Date: 20120618
  Receipt Date: 20120612
  Transmission Date: 20120825
  Serious: No
  Sender: FDA-Public Use
  Company Number: US-PFIZER INC-2012113293

PATIENT
  Sex: Male
  Weight: 109 kg

DRUGS (16)
  1. TERAZOSIN [Concomitant]
     Dosage: 5 MG, 1X/DAY
  2. ZOLPIDEM [Concomitant]
     Dosage: 5 MG, 1X/DAY
  3. PHENERGAN [Concomitant]
  4. SUTENT [Suspect]
     Indication: RENAL CELL CARCINOMA
     Dosage: 50 MG, 1X/DAY
     Route: 048
     Dates: start: 20120316
  5. SUTENT [Suspect]
     Dosage: 50 MG, 1X/DAY
     Dates: start: 20120327, end: 20120518
  6. PRILOSEC [Concomitant]
     Dosage: UNK
  7. DIOVAN HCT [Concomitant]
     Dosage: 320/25 MG, 1X/DAY
  8. AMLODIPINE [Concomitant]
     Dosage: 10 MG, 1X/DAY
  9. SYNTHROID [Concomitant]
     Dosage: 200 UG, 1X/DAY
  10. ZOCOR [Concomitant]
     Dosage: 20 MG, 1X/DAY
  11. AVODART [Concomitant]
     Dosage: UNK, 1X/DAY
  12. CYMBALTA [Concomitant]
     Dosage: 60 MG, 1X/DAY
  13. HYDROCODONE BITARTRATE [Suspect]
  14. TOPROL-XL [Concomitant]
     Dosage: 200 MG, 1X/DAY
  15. NORVASC [Concomitant]
     Dosage: UNK
  16. POTASSIUM CHLORIDE [Concomitant]
     Dosage: 20 MEQ, 4X/DAY

REACTIONS (8)
  - RENAL CELL CARCINOMA [None]
  - FATIGUE [None]
  - DISEASE PROGRESSION [None]
  - NAUSEA [None]
  - WEIGHT DECREASED [None]
  - HALLUCINATION [None]
  - DYSPEPSIA [None]
  - ABDOMINAL PAIN [None]
